FAERS Safety Report 13430254 (Version 1)
Quarter: 2017Q2

REPORT INFORMATION
  Report Type: Spontaneous
  Country: US (occurrence: US)
  Receive Date: 20170411
  Receipt Date: 20170411
  Transmission Date: 20170830
  Serious: No
  Sender: FDA-Public Use
  Company Number: None

PATIENT
  Age: 61 Year
  Sex: Female

DRUGS (1)
  1. NEXAVAR [Suspect]
     Active Substance: SORAFENIB
     Indication: HEPATOCELLULAR CARCINOMA
     Dosage: 400MG TWICE DAILY BY MOUTH
     Route: 048
     Dates: start: 20170201, end: 20170325

REACTIONS (2)
  - Nausea [None]
  - Rash generalised [None]

NARRATIVE: CASE EVENT DATE: 20170215
